FAERS Safety Report 17880975 (Version 1)
Quarter: 2020Q2

REPORT INFORMATION
  Report Type: Spontaneous
  Country: FR (occurrence: FR)
  Receive Date: 20200610
  Receipt Date: 20200610
  Transmission Date: 20200714
  Serious: Yes (Hospitalization)
  Sender: FDA-Public Use
  Company Number: FR-TEVA-2020-FR-1246022

PATIENT
  Age: 15 Year
  Sex: Female
  Weight: 58 kg

DRUGS (3)
  1. PARACETAMOL [Suspect]
     Active Substance: ACETAMINOPHEN
     Indication: SUICIDE ATTEMPT
     Route: 048
     Dates: start: 20200119, end: 20200119
  2. TRAMADOL BASE [Suspect]
     Active Substance: TRAMADOL
     Indication: SUICIDE ATTEMPT
     Route: 048
     Dates: start: 20200119, end: 20200119
  3. AMOXICILLIN. [Suspect]
     Active Substance: AMOXICILLIN
     Indication: SUICIDE ATTEMPT
     Route: 048
     Dates: start: 20200119, end: 20200119

REACTIONS (2)
  - Asthenia [Recovered/Resolved]
  - Miosis [Recovered/Resolved]

NARRATIVE: CASE EVENT DATE: 20200120
